FAERS Safety Report 4485495-X (Version None)
Quarter: 2004Q4

REPORT INFORMATION
  Report Type: 
  Country: None (occurrence: None)
  Receive Date: 20041022
  Receipt Date: 20041006
  Transmission Date: 20050328
  Serious: Yes (Death)
  Sender: FDA-Public Use
  Company Number: 2004AL000759

PATIENT
  Age: 58 Year
  Sex: 0

DRUGS (1)
  1. METFORMIN HYDROCHLORIDE TABLETS USP, 1000 MG (PUREPAC) [Suspect]
     Dosage: PO
     Route: 048

REACTIONS (11)
  - BLOOD BICARBONATE DECREASED [None]
  - BLOOD CREATININE DECREASED [None]
  - BLOOD GLUCOSE DECREASED [None]
  - BLOOD POTASSIUM INCREASED [None]
  - BLOOD PRESSURE DECREASED [None]
  - CARDIAC ARREST [None]
  - COMPLETED SUICIDE [None]
  - GENERAL PHYSICAL HEALTH DETERIORATION [None]
  - HAEMODIALYSIS [None]
  - INTENTIONAL OVERDOSE [None]
  - THERAPY NON-RESPONDER [None]
